FAERS Safety Report 9845930 (Version 1)
Quarter: 2014Q1

REPORT INFORMATION
  Report Type: Spontaneous
  Country: US (occurrence: None)
  Receive Date: 20140122
  Receipt Date: 20140122
  Transmission Date: 20141002
  Serious: Yes (Death)
  Sender: FDA-Public Use
  Company Number: B0960184A

PATIENT
  Age: 70 Year
  Sex: Male

DRUGS (4)
  1. BUPROPION HYDROCHLORIDE BUPROPION HYDROCHLORIDE [Suspect]
     Route: 048
  2. METOPROLOL (METOPROLOL) [Suspect]
     Route: 048
  3. FOSPHENYTOIN SODIUM (FOSPHENYTOIN SODIUM) [Suspect]
     Route: 048
  4. TRAMADOL HYDROCHLORIDE (TRAMADOL HYDROCHLORIDE) [Suspect]
     Route: 048

REACTIONS (1)
  - Completed suicide [None]
